FAERS Safety Report 10384735 (Version 3)
Quarter: 2014Q4

REPORT INFORMATION
  Report Type: Spontaneous
  Country: IT (occurrence: IT)
  Receive Date: 20140814
  Receipt Date: 20141027
  Transmission Date: 20150528
  Serious: Yes (Death, Other)
  Sender: FDA-Public Use
  Company Number: IT-ACTAVIS-2014-17373

PATIENT
  Age: 41 Year
  Sex: Female
  Weight: 67 kg

DRUGS (1)
  1. DOCETAXEL ACTAVIS [Suspect]
     Active Substance: DOCETAXEL
     Indication: PRODUCT USED FOR UNKNOWN INDICATION
     Dosage: 170 - 140 MG/SQM BODY/CYCLIC
     Route: 042
     Dates: start: 20140430, end: 20140611

REACTIONS (16)
  - Diarrhoea [Fatal]
  - Pneumonitis [Fatal]
  - Dyspnoea [Fatal]
  - Sepsis [Fatal]
  - Subendocardial ischaemia [Fatal]
  - Stomatitis [Recovered/Resolved]
  - Pyrexia [Unknown]
  - Neutropenia [Recovered/Resolved]
  - Cough [Fatal]
  - Tachycardia [Fatal]
  - Ventricular hypertrophy [Fatal]
  - Gravitational oedema [Fatal]
  - Cardiac failure [Fatal]
  - Asthenia [Fatal]
  - Arteriosclerosis coronary artery [Fatal]
  - Aortic valve disease mixed [Fatal]

NARRATIVE: CASE EVENT DATE: 20140430
